FAERS Safety Report 6767018-5 (Version None)
Quarter: 2010Q2

REPORT INFORMATION
  Report Type: 
  Country: None (occurrence: None)
  Receive Date: 20100611
  Receipt Date: 20100602
  Transmission Date: 20101027
  Serious: Yes (Other)
  Sender: FDA-Public Use
  Company Number: US-MERCK-1006USA00531

PATIENT
  Age: 54 Year
  Sex: Female

DRUGS (8)
  1. FOSAMAX [Suspect]
     Route: 048
     Dates: start: 20000101
  2. TYLENOL W/ CODEINE [Concomitant]
     Route: 065
  3. XANAX [Concomitant]
     Route: 065
  4. QUESTRAN [Concomitant]
     Route: 065
  5. GASTROINTESTINAL PREPARATIONS (UNSPECIFIED) [Concomitant]
     Route: 065
  6. BONIVA [Suspect]
     Route: 065
     Dates: start: 20070101
  7. PREDNISONE [Suspect]
     Route: 065
  8. XIFAXAN [Concomitant]
     Route: 065

REACTIONS (4)
  - ADVERSE EVENT [None]
  - CROHN'S DISEASE [None]
  - DRUG INEFFECTIVE [None]
  - OSTEOPOROSIS [None]
